FAERS Safety Report 19862675 (Version 8)
Quarter: 2023Q4

REPORT INFORMATION
  Report Type: Spontaneous
  Country: US (occurrence: US)
  Receive Date: 20210921
  Receipt Date: 20231030
  Transmission Date: 20240109
  Serious: No
  Sender: FDA-Public Use
  Company Number: US-GLAXOSMITHKLINE-US2021198068

PATIENT
  Sex: Female
  Weight: 91.35 kg

DRUGS (8)
  1. ZEJULA [Suspect]
     Active Substance: NIRAPARIB
     Indication: Ovarian cancer
     Dosage: 200 MG, QD
     Route: 048
     Dates: start: 20210826
  2. ZEJULA [Suspect]
     Active Substance: NIRAPARIB
     Indication: Chronic kidney disease
     Dosage: 300 MG, QD
     Route: 048
     Dates: end: 20211217
  3. ZEJULA [Suspect]
     Active Substance: NIRAPARIB
     Dosage: 200 MG, QD
     Route: 048
  4. ZEJULA [Suspect]
     Active Substance: NIRAPARIB
     Dosage: 200 MG, QD
  5. ZEJULA [Suspect]
     Active Substance: NIRAPARIB
     Dosage: UNK (100 MG 2 CAPSULES DAILYALTERNATING WITH 3 CAPSULES EVERY OTHER DAY BY MOUTH DAILY)
     Route: 048
  6. ZEJULA [Suspect]
     Active Substance: NIRAPARIB
     Dosage: UNK 200MG (2 TABLETS) ONCE DAILY ALTERNATING WITH 300MG (3 TABLETS) ONCE DAILY
  7. ZEJULA [Suspect]
     Active Substance: NIRAPARIB
     Indication: Ovarian cancer
     Dosage: UNK (200MG (2 TABLETS) ONCE DAILY ALTERNATING WITH 300MG (3 TABLETS) ONCE DAILY)
     Route: 048
  8. NOVOLOG MIX 70/30 [Concomitant]
     Active Substance: INSULIN ASPART
     Indication: Product used for unknown indication
     Dosage: UNK

REACTIONS (15)
  - Blood pressure increased [Not Recovered/Not Resolved]
  - Arthralgia [Recovered/Resolved]
  - Constipation [Not Recovered/Not Resolved]
  - Fatigue [Recovering/Resolving]
  - Adverse drug reaction [Unknown]
  - Asthenia [Unknown]
  - Transfusion [Unknown]
  - White coat hypertension [Not Recovered/Not Resolved]
  - Blood glucose increased [Not Recovered/Not Resolved]
  - Hypoaesthesia [Unknown]
  - Stress [Unknown]
  - Pain in extremity [Unknown]
  - Pain [Unknown]
  - Product use in unapproved indication [Unknown]
  - Inappropriate schedule of product administration [Unknown]
